FAERS Safety Report 8737818 (Version 2)
Quarter: 2013Q4

REPORT INFORMATION
  Report Type: Spontaneous
  Country: US (occurrence: US)
  Receive Date: 20120822
  Receipt Date: 20131101
  Transmission Date: 20140711
  Serious: No
  Sender: FDA-Public Use
  Company Number: US-009507513-1208USA006366

PATIENT
  Sex: Male

DRUGS (3)
  1. A AND D FIRST AID [Suspect]
     Indication: SKIN IRRITATION
     Dosage: UNK, UNKNOWN
     Route: 061
     Dates: start: 201206
  2. VASELINE [Concomitant]
     Indication: SKIN IRRITATION
     Dosage: UNK, UNKNOWN
     Route: 065
  3. CALAMINE LOTION [Concomitant]
     Indication: SKIN IRRITATION
     Dosage: UNK, UNKNOWN
     Route: 065

REACTIONS (1)
  - Drug ineffective [Unknown]
